FAERS Safety Report 9267906 (Version 1)
Quarter: 2013Q2

REPORT INFORMATION
  Report Type: Spontaneous
  Country: US (occurrence: US)
  Receive Date: 20130502
  Receipt Date: 20130502
  Transmission Date: 20140414
  Serious: No
  Sender: FDA-Public Use
  Company Number: US-ALEXION-A201201248

PATIENT
  Sex: Female
  Weight: 60.3 kg

DRUGS (21)
  1. SOLIRIS 300MG [Suspect]
     Indication: PAROXYSMAL NOCTURNAL HAEMOGLOBINURIA
     Dosage: UNK
     Route: 042
  2. ALEVE [Concomitant]
     Dosage: 220 MG, BID PRN
     Route: 048
  3. B COMPLEX [Concomitant]
     Dosage: 1 TABLET SATURDAY
     Route: 048
  4. CALCIUM [Concomitant]
     Dosage: 500 MG, QD
     Route: 048
  5. COLD + ALLERGY [Concomitant]
     Indication: NASOPHARYNGITIS
     Dosage: UNK
     Route: 048
  6. COLD + ALLERGY [Concomitant]
     Indication: HYPERSENSITIVITY
  7. COUMADIN [Concomitant]
     Dosage: 7.5 MG, QD M W F
     Route: 048
  8. COUMADIN [Concomitant]
     Dosage: 10 MG, QD T TH S SUN
     Route: 048
  9. FISH OIL [Concomitant]
     Dosage: 1 TABLET QD
     Route: 048
  10. GLUCOSE [Concomitant]
     Dosage: UNK
     Route: 048
  11. KLONOPIN [Concomitant]
     Dosage: 0.5 MG, BID HALF A TABLET
     Route: 048
  12. LOESTRIN [Concomitant]
     Dosage: 1 MG 20 MCG TAKE 1 QD
     Route: 048
  13. MULTIPLE VITAMINS [Concomitant]
     Dosage: 1 TABLET QD
     Route: 048
  14. NATURAL VITAMIN D [Concomitant]
     Dosage: 1000 UNITS, BID
     Route: 048
  15. PROBIOTIC [Concomitant]
     Indication: ROUTINE HEALTH MAINTENANCE
     Dosage: 1 PRIOR TO EACH MEAL
     Route: 048
  16. PROCHLORPERAZINE MALEATE [Concomitant]
     Indication: NAUSEA
     Dosage: 10 MG, QID
     Route: 048
  17. SIMETHICONE [Concomitant]
     Dosage: 125 MG, PRN
     Route: 048
  18. TYLENOL EXTRA STRENGTH [Concomitant]
     Dosage: 500 MG, PRN TAKE 2
     Route: 048
  19. VITAMIN B-12 [Concomitant]
     Dosage: 1000 ?G, QD
     Route: 048
  20. VITAMIN C [Concomitant]
     Dosage: 500 MG, QD
     Route: 048
  21. ZANTAC [Concomitant]
     Dosage: 150 MG, QD
     Route: 048

REACTIONS (1)
  - Upper respiratory tract infection [Unknown]
